FAERS Safety Report 5486097-9 (Version None)
Quarter: 2007Q4

REPORT INFORMATION
  Report Type: 
  Country: None (occurrence: None)
  Receive Date: 20071015
  Receipt Date: 20071003
  Transmission Date: 20080405
  Serious: Yes (Other)
  Sender: FDA-Public Use
  Company Number: US-PFIZER INC-2007084695

PATIENT
  Sex: Female
  Weight: 72.727 kg

DRUGS (2)
  1. CHAMPIX [Suspect]
     Indication: SMOKING CESSATION THERAPY
     Route: 048
     Dates: start: 20070918, end: 20070925
  2. ALPRAZOLAM [Suspect]
     Indication: AGITATION
     Route: 048

REACTIONS (10)
  - ACTIVITIES OF DAILY LIVING IMPAIRED [None]
  - DECREASED APPETITE [None]
  - FEELING OF DESPAIR [None]
  - HALLUCINATION, AUDITORY [None]
  - IMPAIRED WORK ABILITY [None]
  - INSOMNIA [None]
  - PARANOIA [None]
  - SOMNOLENCE [None]
  - STARING [None]
  - WEIGHT DECREASED [None]
